FAERS Safety Report 21722253 (Version 1)
Quarter: 2022Q4

REPORT INFORMATION
  Report Type: Spontaneous
  Country: RO (occurrence: RO)
  Receive Date: 20221213
  Receipt Date: 20221213
  Transmission Date: 20230113
  Serious: Yes (Death, Other)
  Sender: FDA-Public Use
  Company Number: RO-SA-SAC20221213000451

PATIENT

DRUGS (1)
  1. CAPLACIZUMAB [Suspect]
     Active Substance: CAPLACIZUMAB

REACTIONS (2)
  - Coma [Fatal]
  - Posterior tibial tendon dysfunction [Fatal]

NARRATIVE: CASE EVENT DATE: 20221202
